FAERS Safety Report 5467898-X (Version None)
Quarter: 2007Q3

REPORT INFORMATION
  Report Type: 
  Country: None (occurrence: None)
  Receive Date: 20070926
  Receipt Date: 20070918
  Transmission Date: 20080115
  Serious: Yes (Other)
  Sender: FDA-Public Use
  Company Number: US-JNJFOC-20070705847

PATIENT
  Sex: Female
  Weight: 89.81 kg

DRUGS (6)
  1. REMICADE [Suspect]
     Route: 042
  2. REMICADE [Suspect]
     Indication: CROHN'S DISEASE
     Route: 042
  3. IMURAN [Concomitant]
  4. PENTASA [Concomitant]
  5. SYNTHROID [Concomitant]
  6. AVAPRO [Concomitant]

REACTIONS (1)
  - OPEN WOUND [None]
